FAERS Safety Report 8163995-9 (Version None)
Quarter: 2012Q1

REPORT INFORMATION
  Report Type: 
  Country: None (occurrence: None)
  Receive Date: 20120224
  Receipt Date: 20120215
  Transmission Date: 20120608
  Serious: Yes (Other)
  Sender: FDA-Public Use
  Company Number: PHHY2012JP013149

PATIENT

DRUGS (2)
  1. ANGIOTENSIN RECEPTOR BLOCKERS [Concomitant]
  2. RASILEZ [Suspect]
     Indication: HYPERTENSION
     Route: 048

REACTIONS (4)
  - PYREXIA [None]
  - RENAL FAILURE ACUTE [None]
  - NEPHROPATHY [None]
  - BLOOD PRESSURE DECREASED [None]
